FAERS Safety Report 7412685-6 (Version None)
Quarter: 2011Q2

REPORT INFORMATION
  Report Type: 
  Country: None (occurrence: None)
  Receive Date: 20110413
  Receipt Date: 20101021
  Transmission Date: 20111010
  Serious: Yes (Hospitalization, Disabling, Other)
  Sender: FDA-Public Use
  Company Number: US-BAYER-201011108NA

PATIENT
  Age: 18 Year
  Sex: Female
  Weight: 82 kg

DRUGS (1)
  1. YASMIN [Suspect]
     Indication: ORAL CONTRACEPTION
     Route: 048
     Dates: start: 20050601, end: 20060401

REACTIONS (11)
  - PULMONARY EMBOLISM [None]
  - FOOT AMPUTATION [None]
  - GAIT DISTURBANCE [None]
  - PNEUMONIA [None]
  - DYSPNOEA [None]
  - INTRACARDIAC THROMBUS [None]
  - ISCHAEMIC STROKE [None]
  - ENDOCARDITIS BACTERIAL [None]
  - AMNESIA [None]
  - FEMORAL ARTERY EMBOLISM [None]
  - COMA [None]
